FAERS Safety Report 26063462 (Version 1)
Quarter: 2025Q4

REPORT INFORMATION
  Report Type: Spontaneous
  Country: CN (occurrence: CN)
  Receive Date: 20251119
  Receipt Date: 20251119
  Transmission Date: 20260119
  Serious: Yes (Other)
  Sender: NOVARTIS
  Company Number: CN-002147023-NVSC2025CN174777

PATIENT
  Age: 39 Year
  Sex: Female
  Weight: 62 kg

DRUGS (2)
  1. RIBOCICLIB [Suspect]
     Active Substance: RIBOCICLIB
     Indication: Breast cancer
     Dosage: 400 MG, QD
     Route: 048
     Dates: start: 20251025, end: 20251108
  2. RIBOCICLIB [Suspect]
     Active Substance: RIBOCICLIB
     Indication: Chemotherapy

REACTIONS (3)
  - Myelosuppression [Unknown]
  - White blood cell count decreased [Unknown]
  - Neutrophil count decreased [Unknown]

NARRATIVE: CASE EVENT DATE: 20251108
